FAERS Safety Report 8044023-2 (Version None)
Quarter: 2012Q1

REPORT INFORMATION
  Report Type: 
  Country: None (occurrence: None)
  Receive Date: 20120113
  Receipt Date: 20120103
  Transmission Date: 20120608
  Serious: Yes (Hospitalization, Other)
  Sender: FDA-Public Use
  Company Number: US-ELI_LILLY_AND_COMPANY-US201112001017

PATIENT
  Sex: Female
  Weight: 98.413 kg

DRUGS (12)
  1. LOMOTIL [Concomitant]
  2. OS-CAL [Concomitant]
  3. LEVOTHYROXINE SODIUM [Concomitant]
  4. VITAMIN B-12 [Concomitant]
  5. TOPROL-XL [Concomitant]
  6. ASPIRIN [Concomitant]
  7. ALIGN [Concomitant]
  8. LOTREL [Concomitant]
  9. GABAPENTIN [Concomitant]
  10. FORTEO [Suspect]
     Indication: OSTEOPOROSIS
     Dosage: 20 UG, QD
     Route: 058
     Dates: start: 20110815
  11. CIPROFLOXACIN [Concomitant]
  12. MULTI-VITAMIN [Concomitant]

REACTIONS (3)
  - MUSCULAR WEAKNESS [None]
  - ESCHERICHIA URINARY TRACT INFECTION [None]
  - DEEP VEIN THROMBOSIS [None]
